FAERS Safety Report 25311815 (Version 1)
Quarter: 2025Q2

REPORT INFORMATION
  Report Type: Spontaneous
  Country: IN (occurrence: IN)
  Receive Date: 20250514
  Receipt Date: 20250514
  Transmission Date: 20250717
  Serious: Yes (Hospitalization)
  Sender: MYLAN
  Company Number: IN-MYLANLABS-2025M1040152

PATIENT
  Age: 33 Year
  Sex: Female
  Weight: 65 kg

DRUGS (4)
  1. ACETAMINOPHEN [Suspect]
     Active Substance: ACETAMINOPHEN
     Indication: Post lumbar puncture syndrome
  2. TRAMADOL [Suspect]
     Active Substance: TRAMADOL
     Indication: Post lumbar puncture syndrome
  3. BUPIVACAINE [Suspect]
     Active Substance: BUPIVACAINE
     Indication: Spinal anaesthesia
  4. LACTATED RINGERS SOLUTION [Suspect]
     Active Substance: CALCIUM CHLORIDE\POTASSIUM CHLORIDE\SODIUM CHLORIDE\SODIUM LACTATE
     Indication: Product used for unknown indication

REACTIONS (2)
  - Therapy non-responder [Unknown]
  - Maternal exposure during delivery [Recovered/Resolved]
